FAERS Safety Report 5845796-7 (Version None)
Quarter: 2008Q3

REPORT INFORMATION
  Report Type: 
  Country: None (occurrence: None)
  Receive Date: 20080814
  Receipt Date: 20080805
  Transmission Date: 20090109
  Serious: Yes (Other)
  Sender: FDA-Public Use
  Company Number: US-ELI_LILLY_AND_COMPANY-US200805006048

PATIENT
  Sex: Female

DRUGS (2)
  1. HUMULIN N [Suspect]
     Dosage: UNK, OTHER
     Dates: start: 20080519, end: 20080501
  2. HUMULIN R [Suspect]
     Dosage: UNK, OTHER

REACTIONS (6)
  - ADVERSE DRUG REACTION [None]
  - CONFUSIONAL STATE [None]
  - CONVULSION [None]
  - FALL [None]
  - HYPOGLYCAEMIA [None]
  - VISUAL ACUITY REDUCED [None]
